FAERS Safety Report 7154370-4 (Version None)
Quarter: 2010Q4

REPORT INFORMATION
  Report Type: 
  Country: None (occurrence: None)
  Receive Date: 20101213
  Receipt Date: 20101206
  Transmission Date: 20110411
  Serious: Yes (Hospitalization)
  Sender: FDA-Public Use
  Company Number: US-US-EMD SERONO, INC.-236990J08USA

PATIENT
  Sex: Female
  Weight: 49.94 kg

DRUGS (4)
  1. REBIF [Suspect]
     Indication: MULTIPLE SCLEROSIS
     Route: 058
     Dates: start: 20050623
  2. XANAX [Concomitant]
     Indication: MUSCLE SPASMS
     Route: 065
     Dates: start: 20050101
  3. ADVIL [Concomitant]
     Indication: PREMEDICATION
     Route: 065
  4. AMITRIPTYLINE [Concomitant]
     Indication: PAIN IN EXTREMITY
     Route: 065
     Dates: start: 20040101

REACTIONS (9)
  - CENTRAL NERVOUS SYSTEM LESION [None]
  - DYSPEPSIA [None]
  - EYE INFECTION STAPHYLOCOCCAL [None]
  - HYPERTENSION [None]
  - NAUSEA [None]
  - PAIN [None]
  - PAIN IN EXTREMITY [None]
  - PYREXIA [None]
  - SENSORY DISTURBANCE [None]
